FAERS Safety Report 4928450-5 (Version None)
Quarter: 2006Q1

REPORT INFORMATION
  Report Type: 
  Country: None (occurrence: None)
  Receive Date: 20060228
  Receipt Date: 20030605
  Transmission Date: 20060701
  Serious: Yes (Hospitalization, Disabling)
  Sender: FDA-Public Use
  Company Number: US-MERCK-0306USA00839

PATIENT
  Age: 41 Year
  Sex: Female
  Weight: 80 kg

DRUGS (2)
  1. VIOXX [Suspect]
     Indication: BACK PAIN
     Route: 048
     Dates: start: 20001026, end: 20010214
  2. VIOXX [Suspect]
     Indication: PAIN IN EXTREMITY
     Route: 048
     Dates: start: 20001026, end: 20010214

REACTIONS (48)
  - ABDOMINAL PAIN [None]
  - ABDOMINAL PAIN UPPER [None]
  - ARTHRALGIA [None]
  - BACK PAIN [None]
  - BREAST DISCHARGE [None]
  - CHEST PAIN [None]
  - DEHYDRATION [None]
  - DEPENDENCE [None]
  - DIARRHOEA [None]
  - DUODENITIS [None]
  - DYSFUNCTIONAL UTERINE BLEEDING [None]
  - GASTRITIS [None]
  - HAEMORRHOIDS [None]
  - HEADACHE [None]
  - HYPERHIDROSIS [None]
  - HYPERSENSITIVITY [None]
  - HYPERTENSION [None]
  - ILEUS [None]
  - INFECTION [None]
  - INSOMNIA [None]
  - IRON DEFICIENCY ANAEMIA [None]
  - JOINT STIFFNESS [None]
  - MASS EXCISION [None]
  - MENOMETRORRHAGIA [None]
  - MIGRAINE [None]
  - MUSCLE SPASMS [None]
  - MUSCLE TWITCHING [None]
  - MUSCULOSKELETAL DISCOMFORT [None]
  - NAUSEA [None]
  - NECK PAIN [None]
  - NON-CARDIAC CHEST PAIN [None]
  - PAIN [None]
  - PANIC ATTACK [None]
  - PELVIC INFLAMMATORY DISEASE [None]
  - PERIPHERAL COLDNESS [None]
  - PLATELET COUNT INCREASED [None]
  - PNEUMONIA [None]
  - RAYNAUD'S PHENOMENON [None]
  - RECTAL HAEMORRHAGE [None]
  - RESTLESS LEGS SYNDROME [None]
  - SUICIDE ATTEMPT [None]
  - SWELLING [None]
  - SYNCOPE [None]
  - TINNITUS [None]
  - URINARY TRACT INFECTION [None]
  - VAGINAL INFECTION [None]
  - VISION BLURRED [None]
  - VOMITING [None]
